FAERS Safety Report 14612152 (Version 3)
Quarter: 2018Q2

REPORT INFORMATION
  Report Type: Spontaneous
  Country: US (occurrence: US)
  Receive Date: 20180308
  Receipt Date: 20180413
  Transmission Date: 20180711
  Serious: Yes (Other)
  Sender: FDA-Public Use
  Company Number: PHHY2018US038774

PATIENT
  Age: 77 Year
  Sex: Male

DRUGS (2)
  1. BSS [Suspect]
     Active Substance: CALCIUM CHLORIDE\MAGNESIUM CHLORIDE\POTASSIUM CHLORIDE\SODIUM ACETATE\SODIUM CHLORIDE\SODIUM CITRATE
     Indication: PRODUCT USED FOR UNKNOWN INDICATION
     Route: 031
  2. DUOVISC [Suspect]
     Active Substance: CHONDROITIN SULFATE A\HYALURONATE SODIUM
     Indication: PRODUCT USED FOR UNKNOWN INDICATION
     Route: 065

REACTIONS (2)
  - Toxic anterior segment syndrome [Recovered/Resolved]
  - Corneal oedema [Unknown]

NARRATIVE: CASE EVENT DATE: 20180301
